FAERS Safety Report 5359524-5 (Version None)
Quarter: 2007Q2

REPORT INFORMATION
  Report Type: 
  Country: None (occurrence: None)
  Receive Date: 20070615
  Receipt Date: 20070605
  Transmission Date: 20071010
  Serious: Yes (Other)
  Sender: FDA-Public Use
  Company Number: EC-PFIZER INC-2007047268

PATIENT
  Age: 50 Year
  Sex: Female

DRUGS (3)
  1. LYRICA [Suspect]
     Indication: LUMBAR HERNIA
     Route: 048
  2. CELEBREX [Suspect]
     Indication: LUMBAR HERNIA
     Route: 048
  3. ANALGAN [Concomitant]

REACTIONS (2)
  - OEDEMA MOUTH [None]
  - RASH [None]
